FAERS Safety Report 19185737 (Version 1)
Quarter: 2021Q2

REPORT INFORMATION
  Report Type: Spontaneous
  Country: IE (occurrence: IE)
  Receive Date: 20210427
  Receipt Date: 20210427
  Transmission Date: 20210717
  Serious: Yes (Death, Other)
  Sender: FDA-Public Use
  Company Number: IE-COLLEGIUM PHARMACEUTICAL, INC.-2021CGM00432

PATIENT
  Age: 6 Decade
  Sex: Male

DRUGS (2)
  1. TAPENTADOL [Suspect]
     Active Substance: TAPENTADOL
     Indication: PAIN
     Dosage: UNK
     Route: 048
     Dates: start: 20210412, end: 202104
  2. ALL OTHER THERAPEUTIC PRODUCTS [Concomitant]
     Active Substance: UNSPECIFIED INGREDIENT

REACTIONS (2)
  - Completed suicide [Fatal]
  - Death [Fatal]

NARRATIVE: CASE EVENT DATE: 20210413
